FAERS Safety Report 8934497 (Version 1)
Quarter: 2012Q4

REPORT INFORMATION
  Report Type: 
  Country: US (occurrence: US)
  Receive Date: 20121129
  Receipt Date: 20121129
  Transmission Date: 20130627
  Serious: No
  Sender: FDA-Public Use
  Company Number: US-GLAXOSMITHKLINE-A0956684A

PATIENT
  Age: 80 Year
  Sex: Female

DRUGS (7)
  1. FLOVENT [Suspect]
     Indication: CHRONIC OBSTRUCTIVE PULMONARY DISEASE
     Dosage: 1PUFF Twice per day
     Route: 055
     Dates: start: 201110
  2. SIMVASTATIN [Concomitant]
  3. LORSEDIN [Concomitant]
  4. NORVASC [Concomitant]
  5. XANAX [Concomitant]
  6. VITAMIN D [Concomitant]
  7. IMODIUM [Concomitant]

REACTIONS (1)
  - Weight increased [Not Recovered/Not Resolved]
